FAERS Safety Report 8964167 (Version 4)
Quarter: 2013Q3

REPORT INFORMATION
  Report Type: Spontaneous
  Country: US (occurrence: US)
  Receive Date: 20121213
  Receipt Date: 20130801
  Transmission Date: 20140515
  Serious: Yes (Hospitalization)
  Sender: FDA-Public Use
  Company Number: US-B.I. PHARMACEUTICALS,INC./RIDGEFIELD-2012-BI-02512BP

PATIENT
  Age: 67 Year
  Sex: Male
  Weight: 93.89 kg

DRUGS (9)
  1. PRADAXA [Suspect]
     Indication: ATRIAL FIBRILLATION
     Dosage: 300 MG
     Route: 048
     Dates: start: 201105, end: 201111
  2. PRADAXA [Suspect]
     Indication: ANTICOAGULANT THERAPY
  3. LISINOPRIL [Concomitant]
  4. DEMADEX [Concomitant]
  5. AMBIEN [Concomitant]
  6. ZOCOR [Concomitant]
  7. JANUVIA [Concomitant]
  8. PRILOSEC [Concomitant]
  9. INSULIN [Concomitant]

REACTIONS (1)
  - Deep vein thrombosis [Not Recovered/Not Resolved]
